FAERS Safety Report 10017491 (Version 1)
Quarter: 2014Q1

REPORT INFORMATION
  Report Type: Spontaneous
  Country: US (occurrence: None)
  Receive Date: 20140312
  Receipt Date: 20140312
  Transmission Date: 20141002
  Serious: Yes (Other)
  Sender: FDA-Public Use
  Company Number: US-RED-14-00023

PATIENT
  Age: 61 Year
  Sex: Female
  Weight: 56.69 kg

DRUGS (7)
  1. PANHEMATIN [Suspect]
     Indication: PORPHYRIA
     Dosage: UNKNOWN (1 IN 1 D), INTRAVENOUS (NOT OTHERWISE SPECIFIED)?
     Route: 042
     Dates: start: 20140224, end: 20140228
  2. TYLENOL [Suspect]
     Indication: PRODUCT USED FOR UNKNOWN INDICATION
     Dosage: 500 MG, UNKNOWN
     Dates: start: 20140224, end: 20140227
  3. BENADRYL [Suspect]
     Indication: PRODUCT USED FOR UNKNOWN INDICATION
     Dosage: UNKNOWN, INTRAVENOUS (NOT OTHERWISE SPECIFIED)?
     Route: 042
     Dates: start: 20140224, end: 20140227
  4. SYNTHROID (LEVOTHYROXINE SODIUM) LEVOTHYROXINE SODIUM) [Concomitant]
  5. KLOR-CON (POTASSIUM CHLORIDE) (POTASSIUM CHLORIDE) [Concomitant]
  6. MS CONTIN (MORPHINE SULFATE) (MORPHINE SULFATE) [Concomitant]
  7. MS IMMEDIATE RELEASE (MORPHINE SULFATE) (MORPHINE SULFATE) [Concomitant]

REACTIONS (12)
  - Blood pressure increased [None]
  - Cardiac disorder [None]
  - Dysuria [None]
  - Heart rate increased [None]
  - Injection site bruising [None]
  - Injection site pain [None]
  - Arthralgia [None]
  - Burning sensation [None]
  - Asthenia [None]
  - Sensation of blood flow [None]
  - Joint stiffness [None]
  - Palpitations [None]
